FAERS Safety Report 5884612-4 (Version None)
Quarter: 2008Q3

REPORT INFORMATION
  Report Type: 
  Country: None (occurrence: None)
  Receive Date: 20080915
  Receipt Date: 20080915
  Transmission Date: 20090109
  Serious: No
  Sender: FDA-Public Use
  Company Number: None

PATIENT
  Age: 57 Year
  Weight: 81.6475 kg

DRUGS (1)
  1. AUGMENTIN [Suspect]
     Indication: ANIMAL BITE
     Dosage: 1,000 MG 2/DAY FOR 10 DAYS

REACTIONS (1)
  - LIVER INJURY [None]
